FAERS Safety Report 13032791 (Version 2)
Quarter: 2017Q2

REPORT INFORMATION
  Report Type: Report from Study
  Country: US (occurrence: US)
  Receive Date: 20161215
  Receipt Date: 20170508
  Transmission Date: 20170830
  Serious: Yes (Hospitalization)
  Sender: FDA-Public Use
  Company Number: US-ACTELION-A-US2016-146853

PATIENT
  Age: 78 Year
  Sex: Female

DRUGS (2)
  1. ISOSORBIDE. [Concomitant]
     Active Substance: ISOSORBIDE
  2. OPSUMIT [Suspect]
     Active Substance: MACITENTAN
     Indication: PULMONARY ARTERIAL HYPERTENSION
     Dosage: 10 MG, QD
     Route: 048
     Dates: start: 20150413

REACTIONS (8)
  - Abdominal pain [Unknown]
  - Haematemesis [Unknown]
  - Vomiting [Unknown]
  - Gastroenteritis [Unknown]
  - Gastrointestinal disorder [Unknown]
  - Clostridium difficile infection [Unknown]
  - Gastrointestinal haemorrhage [Unknown]
  - Nausea [Unknown]
